FAERS Safety Report 17511979 (Version 1)
Quarter: 2020Q1

REPORT INFORMATION
  Report Type: Spontaneous
  Country: GB (occurrence: GB)
  Receive Date: 20200308
  Receipt Date: 20200308
  Transmission Date: 20200409
  Serious: Yes (Hospitalization, Other)
  Sender: FDA-Public Use
  Company Number: NVSC2020GB060963

PATIENT
  Age: 26 Year
  Sex: Male

DRUGS (1)
  1. METHYLPREDNISOLONE. [Suspect]
     Active Substance: METHYLPREDNISOLONE
     Indication: HAEMOPHAGOCYTIC LYMPHOHISTIOCYTOSIS
     Dosage: UNK(6 DAYS AFTER ADMISSION)
     Route: 042

REACTIONS (4)
  - Acute hepatic failure [Unknown]
  - Hepatic function abnormal [Unknown]
  - Product use in unapproved indication [Unknown]
  - Hepatic encephalopathy [Unknown]
